FAERS Safety Report 11872233 (Version 1)
Quarter: 2015Q4

REPORT INFORMATION
  Report Type: Spontaneous
  Country: GR (occurrence: GR)
  Receive Date: 20151228
  Receipt Date: 20151228
  Transmission Date: 20160305
  Serious: Yes (Other)
  Sender: FDA-Public Use
  Company Number: GR-FRESENIUS KABI-FK201506840

PATIENT
  Age: 79 Year
  Sex: Female

DRUGS (1)
  1. LEVETIRACETAM (MANUFACTURER UNKNOWN) [Suspect]
     Active Substance: LEVETIRACETAM
     Indication: SEIZURE
     Route: 042

REACTIONS (2)
  - Hypomagnesaemia [Unknown]
  - Hypokalaemia [Unknown]
